FAERS Safety Report 18326385 (Version 1)
Quarter: 2020Q3

REPORT INFORMATION
  Report Type: Report from Study
  Country: CA (occurrence: CA)
  Receive Date: 20200929
  Receipt Date: 20200929
  Transmission Date: 20201103
  Serious: Yes (Other)
  Sender: FDA-Public Use
  Company Number: NVSC2020CA160669

PATIENT
  Sex: Female

DRUGS (4)
  1. ACITRETIN. [Concomitant]
     Active Substance: ACITRETIN
     Indication: PRODUCT USED FOR UNKNOWN INDICATION
     Route: 065
  2. METHOTREXATE. [Suspect]
     Active Substance: METHOTREXATE
     Indication: PRODUCT USED FOR UNKNOWN INDICATION
     Dosage: UNK
     Route: 058
  3. DOVONEX [Concomitant]
     Active Substance: CALCIPOTRIENE
     Indication: PRODUCT USED FOR UNKNOWN INDICATION
     Dosage: UNK
     Route: 065
  4. CYCLOSPORINE. [Concomitant]
     Active Substance: CYCLOSPORINE
     Indication: PRODUCT USED FOR UNKNOWN INDICATION
     Route: 065

REACTIONS (10)
  - Psoriasis [Unknown]
  - White blood cell count decreased [Unknown]
  - Pain in extremity [Unknown]
  - Dysstasia [Unknown]
  - Psoriatic arthropathy [Unknown]
  - Gait disturbance [Unknown]
  - Pruritus genital [Unknown]
  - Drug intolerance [Unknown]
  - Genital burning sensation [Unknown]
  - Therapeutic product effect decreased [Unknown]
